FAERS Safety Report 9604020 (Version 1)
Quarter: 2013Q4

REPORT INFORMATION
  Report Type: Spontaneous
  Country: US (occurrence: US)
  Receive Date: 20131008
  Receipt Date: 20131008
  Transmission Date: 20140711
  Serious: No
  Sender: FDA-Public Use
  Company Number: US-B.I. PHARMACEUTICALS,INC./RIDGEFIELD-2013-BI-30898BP

PATIENT
  Sex: Male
  Weight: 97 kg

DRUGS (1)
  1. PRADAXA [Suspect]
     Indication: ATRIAL FIBRILLATION
     Dosage: 300 MG
     Route: 048
     Dates: start: 2012

REACTIONS (5)
  - Contusion [Not Recovered/Not Resolved]
  - Haemorrhage [Not Recovered/Not Resolved]
  - Scar [Not Recovered/Not Resolved]
  - Scar [Not Recovered/Not Resolved]
  - Skin atrophy [Not Recovered/Not Resolved]
